FAERS Safety Report 25551114 (Version 1)
Quarter: 2025Q3

REPORT INFORMATION
  Report Type: Spontaneous
  Country: EU (occurrence: EU)
  Receive Date: 20250714
  Receipt Date: 20250714
  Transmission Date: 20251021
  Serious: Yes (Other)
  Sender: ASCEND THERAPEUTICS US, LLC
  Company Number: EU-Ascend Therapeutics US, LLC-2180491

PATIENT
  Age: 54 Year
  Sex: Female

DRUGS (4)
  1. ESTROGEL [Suspect]
     Active Substance: ESTRADIOL
     Indication: Menopause
     Dates: start: 20240529, end: 2024
  2. UTROGESTAN [Suspect]
     Active Substance: PROGESTERONE
     Dates: start: 20240529, end: 2024
  3. DYDROGESTERONE\ESTRADIOL [Suspect]
     Active Substance: DYDROGESTERONE\ESTRADIOL
     Dates: start: 2025, end: 2025
  4. ESTRADIOL [Suspect]
     Active Substance: ESTRADIOL
     Dates: start: 20240529, end: 2024

REACTIONS (3)
  - Delirium [Recovered/Resolved]
  - Malaise [Recovered/Resolved]
  - Loss of consciousness [Recovered/Resolved]

NARRATIVE: CASE EVENT DATE: 20250101
